FAERS Safety Report 17579347 (Version 2)
Quarter: 2020Q2

REPORT INFORMATION
  Report Type: Spontaneous
  Country: JP (occurrence: JP)
  Receive Date: 20200325
  Receipt Date: 20200401
  Transmission Date: 20200713
  Serious: Yes (Other)
  Sender: FDA-Public Use
  Company Number: JP-GLAXOSMITHKLINE-JP2019JPN235983

PATIENT
  Age: 10 Year
  Sex: Male

DRUGS (4)
  1. RELENZA [Suspect]
     Active Substance: ZANAMIVIR
     Indication: INFLUENZA
     Dosage: 10 MG, BID
     Route: 055
     Dates: start: 20191220, end: 20191224
  2. DOMPERIDONE TABLETS [Concomitant]
     Dosage: 30 MG, 1D
  3. CALONAL TABLET [Concomitant]
     Dosage: 300 MG, PRN
  4. BIOFERMIN TABLETS (BIFIDOBACTERIUM BIFIDUM) [Concomitant]
     Dosage: 3 DF, 1D

REACTIONS (6)
  - Hallucination [Recovered/Resolved]
  - Tremor [Recovered/Resolved]
  - Amnesia [Unknown]
  - Oculogyric crisis [Recovered/Resolved]
  - Abnormal behaviour [Recovered/Resolved]
  - Speech disorder [Recovered/Resolved]

NARRATIVE: CASE EVENT DATE: 20191220
